FAERS Safety Report 9833467 (Version 1)
Quarter: 2014Q1

REPORT INFORMATION
  Report Type: Spontaneous
  Country: US (occurrence: US)
  Receive Date: 20140122
  Receipt Date: 20140122
  Transmission Date: 20141002
  Serious: Yes (Hospitalization)
  Sender: FDA-Public Use
  Company Number: US-ROCHE-1337077

PATIENT
  Sex: Male

DRUGS (29)
  1. XOLAIR [Suspect]
     Indication: ASTHMA
     Dosage: 150MG/1.2ML
     Route: 065
  2. ZYFLO CR [Concomitant]
     Route: 065
  3. DILTIAZEM [Concomitant]
     Route: 065
  4. NEXIUM [Concomitant]
     Route: 065
  5. GABAPENTIN [Concomitant]
     Dosage: ^AT BEDTIME^
     Route: 065
  6. THEOPHYLLINE EXTENDED RELEASE [Concomitant]
     Route: 065
  7. ZOLPIDEM [Concomitant]
     Dosage: ^AT BEDTIME^
     Route: 065
  8. SPIRIVA [Concomitant]
     Route: 065
  9. ALVESCO [Concomitant]
     Dosage: ^2 PUFFS^
     Route: 065
  10. ADVAIR [Concomitant]
     Dosage: 230/21 MCG ^2 PUFFS^
     Route: 065
  11. ASPIRIN [Concomitant]
     Route: 065
  12. ALLEGRA [Concomitant]
     Route: 065
  13. BENADRYL (UNITED STATES) [Concomitant]
     Dosage: AS REQUIRED
     Route: 065
  14. MUCINEX [Concomitant]
     Dosage: 600/30 MG, AS REQUIRED
     Route: 065
  15. BIOTIN [Concomitant]
     Route: 065
  16. BETA CAROTENE [Concomitant]
     Route: 065
  17. CLOTRIMAZOLE [Concomitant]
     Dosage: ^APPLY AROUND THE EYES^
     Route: 065
  18. HYDROCORTISONE [Concomitant]
     Indication: EYE PRURITUS
     Route: 065
  19. TRAVATAN Z [Concomitant]
     Dosage: ^BEDTIME^
     Route: 065
  20. LOTEMAX [Concomitant]
     Route: 065
  21. NASONEX [Concomitant]
     Dosage: ^ONE SPRAY EACH NOSTRIL^
     Route: 045
  22. THERA TEARS [Concomitant]
     Dosage: ^EACH EYE 3-4 TIMES PER DAY^
     Route: 065
  23. NIZORAL SHAMPOO [Concomitant]
     Route: 065
  24. EPIPEN [Concomitant]
  25. PROVENTIL [Concomitant]
     Dosage: 2 PUFFS PRN
     Route: 065
  26. ALBUTEROL [Concomitant]
     Dosage: AS REQUIRED
     Route: 065
  27. CPAP [Concomitant]
     Dosage: ^AT BEDTIME^
     Route: 065
  28. PRAVASTATIN [Concomitant]
     Route: 065
  29. PREDNISONE [Concomitant]
     Route: 065

REACTIONS (1)
  - Pneumonia [Unknown]
